FAERS Safety Report 5037210-9 (Version None)
Quarter: 2006Q2

REPORT INFORMATION
  Report Type: 
  Country: None (occurrence: None)
  Receive Date: 20060623
  Receipt Date: 20060607
  Transmission Date: 20061013
  Serious: Yes (Other)
  Sender: FDA-Public Use
  Company Number: GB200603006747

PATIENT
  Age: 17 Year
  Sex: Male
  Weight: 83 kg

DRUGS (4)
  1. STRATTERA [Suspect]
     Indication: PSYCHOMOTOR HYPERACTIVITY
     Dosage: 25 MG, ORAL
     Route: 048
     Dates: start: 20060301
  2. SERTRALINE [Concomitant]
  3. LAMOTRIGINE [Concomitant]
  4. ETHOSUXIMIDE [Concomitant]

REACTIONS (2)
  - COMPLEX PARTIAL SEIZURES [None]
  - CONDITION AGGRAVATED [None]
